FAERS Safety Report 21661181 (Version 1)
Quarter: 2022Q4

REPORT INFORMATION
  Report Type: Spontaneous
  Country: JP (occurrence: JP)
  Receive Date: 20221130
  Receipt Date: 20221130
  Transmission Date: 20230113
  Serious: Yes (Other)
  Sender: FDA-Public Use
  Company Number: JP-CHEPLA-2022011088

PATIENT
  Age: 87 Year
  Sex: Male

DRUGS (6)
  1. GANCICLOVIR [Suspect]
     Active Substance: GANCICLOVIR
     Indication: Cytomegalovirus infection
     Dosage: DAY 27, STARTED MAINTENANCE DOSE
  2. GANCICLOVIR [Suspect]
     Active Substance: GANCICLOVIR
     Indication: Cytomegalovirus infection
     Dosage: DAY 34, GIVEN AT INITIAL TREATMENT DOSE
  3. PREDNISOLONE [Concomitant]
     Active Substance: PREDNISOLONE
     Indication: Pemphigoid
     Dosage: ON DAY 4 AFTER ADMISSION?DAILY DOSE: 50 MILLIGRAM
  4. PREDNISOLONE [Concomitant]
     Active Substance: PREDNISOLONE
     Indication: Pemphigoid
     Dosage: DAILY DOSE: 5 MILLIGRAM
  5. PREDNISOLONE [Concomitant]
     Active Substance: PREDNISOLONE
     Indication: Pemphigoid
     Dosage: ON DAY 22 AFTER ADMISSION?DAILY DOSE: 45 MILLIGRAM
  6. IMMUNOGLOBULIN [Concomitant]
     Indication: Pemphigoid
     Dosage: FOR FIVE DAYS?DAILY DOSE: 0.4 GRAM PER KILOGRAM
     Route: 042

REACTIONS (2)
  - Haematemesis [Unknown]
  - Melaena [Unknown]
